FAERS Safety Report 6417850-2 (Version None)
Quarter: 2009Q4

REPORT INFORMATION
  Report Type: 
  Country: None (occurrence: None)
  Receive Date: 20091028
  Receipt Date: 20091021
  Transmission Date: 20100525
  Serious: Yes (Congenital Anomaly)
  Sender: FDA-Public Use
  Company Number: A0681438A

PATIENT
  Sex: Female

DRUGS (8)
  1. PAROXETINE [Suspect]
     Indication: DEPRESSION
     Dosage: 20MG PER DAY
     Dates: start: 20050421, end: 20060601
  2. PAXIL [Suspect]
     Indication: DRUG USE FOR UNKNOWN INDICATION
     Dosage: 25MG PER DAY
     Dates: start: 20050601, end: 20051201
  3. VITAMIN TAB [Concomitant]
  4. VIRAMUNE [Concomitant]
  5. COMBIVIR [Concomitant]
  6. FLAGYL [Concomitant]
  7. FOLIC ACID [Concomitant]
  8. IRON [Concomitant]

REACTIONS (4)
  - ATRIAL SEPTAL DEFECT [None]
  - CARDIAC MURMUR [None]
  - CONGENITAL ANOMALY [None]
  - DRUG EXPOSURE DURING PREGNANCY [None]
